FAERS Safety Report 10426994 (Version 1)
Quarter: 2014Q3

REPORT INFORMATION
  Report Type: Spontaneous
  Country: US (occurrence: US)
  Receive Date: 20140903
  Receipt Date: 20140903
  Transmission Date: 20150326
  Serious: No
  Sender: FDA-Public Use
  Company Number: US-BANPHARM-20131794

PATIENT
  Age: 71 Year
  Sex: Male
  Weight: 83.91 kg

DRUGS (5)
  1. CARVEDILOL 25 MG [Concomitant]
     Dosage: 1 DF, QD,
  2. ZYRTEC [Suspect]
     Active Substance: CETIRIZINE HYDROCHLORIDE
     Indication: HYPERSENSITIVITY
     Dosage: 1 DF, QD,
     Route: 048
     Dates: start: 20131007
  3. MULTIPLE VITAMINS [Concomitant]
     Active Substance: VITAMINS
     Dosage: 1 DF, QD,
  4. HYDROCHLOROTHIAZIDE 25 MG [Concomitant]
     Dosage: 1 DF, QD,
  5. ATOVASTATIN 40 MG [Concomitant]
     Dosage: 1 DF, QD,

REACTIONS (1)
  - Drug ineffective [Unknown]
